FAERS Safety Report 21487299 (Version 1)
Quarter: 2022Q4

REPORT INFORMATION
  Report Type: Spontaneous
  Country: US (occurrence: US)
  Receive Date: 20221020
  Receipt Date: 20221020
  Transmission Date: 20230113
  Serious: No
  Sender: FDA-Public Use
  Company Number: US-ANIPHARMA-2022-US-018476

PATIENT
  Age: 67 Year
  Sex: Female
  Weight: 79.38 kg

DRUGS (1)
  1. CHOLESTYRAMINE [Suspect]
     Active Substance: CHOLESTYRAMINE
     Indication: Blood cholesterol
     Dosage: 1 SCOOP IN THE MORNING.
     Route: 048
     Dates: start: 20220719, end: 20220727

REACTIONS (4)
  - Nausea [Recovering/Resolving]
  - Fatigue [Recovering/Resolving]
  - Pain [Recovering/Resolving]
  - Hot flush [Recovering/Resolving]

NARRATIVE: CASE EVENT DATE: 20220719
